FAERS Safety Report 21663345 (Version 2)
Quarter: 2023Q1

REPORT INFORMATION
  Report Type: Report from Study
  Country: JP (occurrence: None)
  Receive Date: 20221130
  Receipt Date: 20230110
  Transmission Date: 20230418
  Serious: Yes (Death, Hospitalization)
  Sender: FDA-Public Use
  Company Number: JP-Merck Healthcare KGaA-9290349

PATIENT
  Age: 76 Year
  Sex: Male
  Weight: 55 kg

DRUGS (4)
  1. BAVENCIO [Suspect]
     Active Substance: AVELUMAB
     Indication: Transitional cell carcinoma
     Dosage: 125 ML/HR
     Route: 041
     Dates: start: 20210511, end: 20210511
  2. BAVENCIO [Suspect]
     Active Substance: AVELUMAB
     Dosage: 125 ML/HR
     Route: 041
     Dates: start: 20210525, end: 20210525
  3. ACETAMINOPHEN [Concomitant]
     Active Substance: ACETAMINOPHEN
     Indication: Premedication
     Route: 041
     Dates: start: 20210511, end: 20210525
  4. POLARAMINE [Concomitant]
     Active Substance: DEXCHLORPHENIRAMINE MALEATE
     Indication: Premedication
     Route: 041
     Dates: start: 20210511, end: 20210525

REACTIONS (4)
  - Interstitial lung disease [Not Recovered/Not Resolved]
  - Disease progression [Fatal]
  - Hepatic function abnormal [Recovering/Resolving]
  - Infusion related reaction [Recovering/Resolving]

NARRATIVE: CASE EVENT DATE: 20210511
